FAERS Safety Report 9278267 (Version 1)
Quarter: 2013Q2

REPORT INFORMATION
  Report Type: Spontaneous
  Country: US (occurrence: US)
  Receive Date: 20130508
  Receipt Date: 20130508
  Transmission Date: 20140414
  Serious: Yes (Congenital Anomaly, Other)
  Sender: FDA-Public Use
  Company Number: US-PFIZER INC-2013141147

PATIENT
  Sex: Male

DRUGS (4)
  1. ZOLOFT [Suspect]
     Indication: POSTPARTUM DEPRESSION
     Dosage: UNK
     Route: 064
     Dates: start: 2001
  2. ZOLOFT [Suspect]
     Indication: ANXIETY
  3. ZOLOFT [Suspect]
     Indication: DEPRESSION
  4. ZOLOFT [Suspect]
     Indication: AFFECTIVE DISORDER

REACTIONS (5)
  - Foetal exposure during pregnancy [Unknown]
  - Congenital aortic valve stenosis [Unknown]
  - Bicuspid aortic valve [Unknown]
  - Aortic valve sclerosis [Unknown]
  - Hydrocele [Unknown]
